FAERS Safety Report 15981298 (Version 2)
Quarter: 2019Q1

REPORT INFORMATION
  Report Type: Spontaneous
  Country: IL (occurrence: IL)
  Receive Date: 20190219
  Receipt Date: 20190226
  Transmission Date: 20190418
  Serious: Yes (Other)
  Sender: FDA-Public Use
  Company Number: PHHY2019IL036635

PATIENT
  Age: 7 Year
  Sex: Male

DRUGS (2)
  1. CARBOPLATIN EBEWE [Suspect]
     Active Substance: CARBOPLATIN
     Indication: OPTIC GLIOMA
     Dosage: UNK
     Route: 065
     Dates: end: 20150302
  2. VINCRISTINE [Concomitant]
     Active Substance: VINCRISTINE
     Indication: OPTIC GLIOMA
     Dosage: UNK
     Route: 065
     Dates: end: 20150302

REACTIONS (5)
  - Brain oedema [Unknown]
  - Drug ineffective [Unknown]
  - Malignant neoplasm progression [Not Recovered/Not Resolved]
  - Optic glioma [Not Recovered/Not Resolved]
  - Central nervous system lesion [Unknown]
